FAERS Safety Report 22521293 (Version 2)
Quarter: 2023Q2

REPORT INFORMATION
  Report Type: Spontaneous
  Country: US (occurrence: US)
  Receive Date: 20230605
  Receipt Date: 20230627
  Transmission Date: 20230722
  Serious: No
  Sender: FDA-Public Use
  Company Number: US-PFIZER INC-202300208359

PATIENT
  Age: 88 Year
  Sex: Female

DRUGS (1)
  1. IBRANCE [Suspect]
     Active Substance: PALBOCICLIB
     Dosage: 125 MG, CYCLIC (DAILY FOR 21 DAYS, FOLLOWED BY 7 DAYS OFF OF A 28 DAY CYCLE)
     Dates: start: 20230419

REACTIONS (5)
  - Rash pruritic [Recovering/Resolving]
  - Pruritus [Recovering/Resolving]
  - Fatigue [Unknown]
  - Dizziness [Unknown]
  - Skin abrasion [Recovering/Resolving]
